FAERS Safety Report 10962078 (Version 4)
Quarter: 2015Q2

REPORT INFORMATION
  Report Type: Spontaneous
  Country: US (occurrence: US)
  Receive Date: 20150327
  Receipt Date: 20150605
  Transmission Date: 20150821
  Serious: No
  Sender: FDA-Public Use
  Company Number: US-PFIZER INC-2015103814

PATIENT
  Age: 65 Year
  Sex: Female
  Weight: 49 kg

DRUGS (8)
  1. RESTASIS [Concomitant]
     Active Substance: CYCLOSPORINE
     Dosage: UNK, 2X/DAY
  2. METFORMIN ASTEC [Concomitant]
     Dosage: 750 MG, 2X/DAY
  3. LYRICA [Suspect]
     Active Substance: PREGABALIN
     Indication: FIBROMYALGIA
     Dosage: 150 MG, 2X/DAY
     Dates: start: 1990
  4. INSULIN-NOVA LOG [Concomitant]
     Dosage: UNK
  5. SIMVASTATIN. [Concomitant]
     Active Substance: SIMVASTATIN
     Dosage: 40 MG, UNK
  6. AMITRIPTYLINE [Concomitant]
     Active Substance: AMITRIPTYLINE
     Dosage: 10 MG, UNK
  7. LISINOPRIL. [Concomitant]
     Active Substance: LISINOPRIL
     Dosage: 5 MG, UNK
  8. LATANOPROST. [Concomitant]
     Active Substance: LATANOPROST
     Dosage: .005%  2X/DAY

REACTIONS (6)
  - Oral herpes [Recovered/Resolved]
  - Oral herpes [Unknown]
  - Gingival blister [Recovered/Resolved]
  - Noninfective gingivitis [Not Recovered/Not Resolved]
  - Gingival blister [Not Recovered/Not Resolved]
  - Noninfective gingivitis [Recovered/Resolved]

NARRATIVE: CASE EVENT DATE: 201404
